FAERS Safety Report 5008448-1 (Version None)
Quarter: 2006Q2

REPORT INFORMATION
  Report Type: 
  Country: None (occurrence: None)
  Receive Date: 20060518
  Receipt Date: 20060503
  Transmission Date: 20061013
  Serious: Yes (Death)
  Sender: FDA-Public Use
  Company Number: 224904

PATIENT
  Age: 48 Year
  Sex: Female
  Weight: 43 kg

DRUGS (10)
  1. AVASTIN [Suspect]
     Indication: COLORECTAL CANCER METASTATIC
     Dosage: 220 MG, Q2W, INTRAVENOUS
     Route: 042
     Dates: start: 20051020, end: 20060313
  2. FLUOROURACIL [Suspect]
     Dosage: 450 MG, Q2W, INTRAVENOUS
     Route: 042
     Dates: start: 20051020, end: 20060314
  3. FLUOROURACIL [Suspect]
     Dosage: 2800 MG, Q2W, INTRAVENOUS
     Route: 042
     Dates: start: 20051020, end: 20060314
  4. ELOXATIN [Suspect]
     Dosage: 90 MG, Q2W, INTRAVENOUS
     Route: 042
     Dates: start: 20051020, end: 20060313
  5. ELVORINE (LEVOLEUCOVORIN CALCIUM) [Suspect]
     Dosage: 140 MG, Q2W, INTRAVENOUS
     Route: 042
     Dates: start: 20051020, end: 20060313
  6. DEXAMETH (DEXAMETHASONE) [Concomitant]
  7. ONDANSETRON [Concomitant]
  8. ALPRAZOLAM [Concomitant]
  9. HYDROXYZINE [Concomitant]
  10. ALIZAPRIDE (ALIZAPRIDE HYDROCHLORIDE) [Concomitant]

REACTIONS (3)
  - ABDOMINAL PAIN [None]
  - SUDDEN DEATH [None]
  - URETERAL DISORDER [None]
